FAERS Safety Report 16331323 (Version 1)
Quarter: 2019Q2

REPORT INFORMATION
  Report Type: Spontaneous
  Country: US (occurrence: US)
  Receive Date: 20190517
  Receipt Date: 20190517
  Transmission Date: 20190711
  Serious: Yes (Hospitalization)
  Sender: FDA-Public Use
  Company Number: None

PATIENT
  Age: 66 Year
  Sex: Female

DRUGS (7)
  1. SILDENAFIL. [Suspect]
     Active Substance: SILDENAFIL
     Indication: PULMONARY ARTERIAL HYPERTENSION
     Route: 048
     Dates: start: 20190415
  2. PANTOPRAZOLE TABLET 40MG [Concomitant]
  3. ONDANSETRON 8MG TABLET [Concomitant]
  4. TRAZODONE TABLET 50MG [Concomitant]
  5. ALLOPURINOL 300MG TABLET [Concomitant]
  6. AMIODARONE TABLET 200MG [Concomitant]
  7. ESCITALOPRAM TABLET 20MG [Concomitant]
     Active Substance: ESCITALOPRAM OXALATE

REACTIONS (2)
  - Noninfective gingivitis [None]
  - Stomatitis [None]

NARRATIVE: CASE EVENT DATE: 20190505
